FAERS Safety Report 18401968 (Version 1)
Quarter: 2020Q4

REPORT INFORMATION
  Report Type: Spontaneous
  Country: US (occurrence: US)
  Receive Date: 20201019
  Receipt Date: 20201019
  Transmission Date: 20210114
  Serious: Yes (Other)
  Sender: FDA-Public Use
  Company Number: NVSC2020US279713

PATIENT
  Age: 25 Month
  Sex: Female

DRUGS (2)
  1. PREDNISONE. [Suspect]
     Active Substance: PREDNISONE
     Indication: PULMONARY HAEMOSIDEROSIS
     Dosage: UNK (INCREASED MAINTANCE DOSE)
     Route: 065
  2. HYDROXYCHLOROQUINE [Suspect]
     Active Substance: HYDROXYCHLOROQUINE
     Indication: PULMONARY HAEMOSIDEROSIS
     Dosage: UNK, (MAINTENANCE THERAPY)
     Route: 065

REACTIONS (2)
  - Pulmonary haemosiderosis [Unknown]
  - Product use in unapproved indication [Unknown]
